FAERS Safety Report 6133550-0 (Version None)
Quarter: 2009Q1

REPORT INFORMATION
  Report Type: 
  Country: None (occurrence: None)
  Receive Date: 20090326
  Receipt Date: 20090313
  Transmission Date: 20090719
  Serious: Yes (Hospitalization)
  Sender: FDA-Public Use
  Company Number: FR-ROCHE-623533

PATIENT
  Sex: Male

DRUGS (12)
  1. NAPROSYN [Suspect]
     Indication: BACK PAIN
     Route: 048
     Dates: start: 20090226, end: 20090227
  2. LAMALINE [Suspect]
     Indication: BACK PAIN
     Route: 048
     Dates: start: 20090226, end: 20090227
  3. SYMBICORT [Concomitant]
  4. SINGULAIR [Concomitant]
  5. XANAX [Concomitant]
  6. TAHOR [Concomitant]
  7. ALLOPURINOL [Concomitant]
  8. KARDEGIC [Concomitant]
  9. LERCAN [Concomitant]
  10. INIPOMP [Concomitant]
  11. PIASCLEDINE [Concomitant]
  12. AERIUS [Concomitant]

REACTIONS (3)
  - ABDOMINAL PAIN [None]
  - COLITIS ISCHAEMIC [None]
  - RECTAL HAEMORRHAGE [None]
